FAERS Safety Report 16550493 (Version 1)
Quarter: 2019Q3

REPORT INFORMATION
  Report Type: Spontaneous
  Country: US (occurrence: US)
  Receive Date: 20190709
  Receipt Date: 20190709
  Transmission Date: 20191004
  Serious: No
  Sender: FDA-Public Use
  Company Number: None

PATIENT
  Age: 63 Year
  Sex: Female
  Weight: 85.5 kg

DRUGS (7)
  1. CPAP [Concomitant]
     Active Substance: DEVICE
  2. LEVOTHYROXINE. [Concomitant]
     Active Substance: LEVOTHYROXINE
  3. IRON WITH VITAMIN C [Concomitant]
  4. MYRBRTRIQ [Concomitant]
  5. ATORVASTATIN [Concomitant]
     Active Substance: ATORVASTATIN
  6. MAGNESIUM [Concomitant]
     Active Substance: MAGNESIUM
  7. BOTOX [Suspect]
     Active Substance: ONABOTULINUMTOXINA
     Indication: MIGRAINE
     Dates: start: 20190410, end: 20190410

REACTIONS (7)
  - Pain in extremity [None]
  - Fatigue [None]
  - Eyelid ptosis [None]
  - Pain [None]
  - Dyspnoea [None]
  - Asthenia [None]
  - Influenza like illness [None]
